FAERS Safety Report 9746921 (Version 6)
Quarter: 2021Q3

REPORT INFORMATION
  Report Type: Report from Study
  Country: US (occurrence: US)
  Receive Date: 20131211
  Receipt Date: 20210907
  Transmission Date: 20211014
  Serious: Yes (Hospitalization, Other)
  Sender: FDA-Public Use
  Company Number: US-SA-2013SA126760

PATIENT
  Age: 63 Year
  Sex: Female
  Weight: 125 kg

DRUGS (4)
  1. TERIFLUNOMIDE. [Suspect]
     Active Substance: TERIFLUNOMIDE
     Indication: MULTIPLE SCLEROSIS
     Dosage: 7 MG,QD
     Route: 048
     Dates: start: 20130308, end: 20170101
  2. BOTOX [Concomitant]
     Active Substance: ONABOTULINUMTOXINA
  3. TEGRETOL [Concomitant]
     Active Substance: CARBAMAZEPINE
  4. OCREVUS [Concomitant]
     Active Substance: OCRELIZUMAB

REACTIONS (9)
  - Trigeminal neuralgia [Not Recovered/Not Resolved]
  - Urinary tract infection [Not Recovered/Not Resolved]
  - Alopecia [Recovered/Resolved]
  - Pneumonia [Not Recovered/Not Resolved]
  - Therapeutic response decreased [Not Recovered/Not Resolved]
  - Mastication disorder [Not Recovered/Not Resolved]
  - Coordination abnormal [Not Recovered/Not Resolved]
  - Multiple sclerosis [Not Recovered/Not Resolved]
  - Sinusitis [Recovering/Resolving]

NARRATIVE: CASE EVENT DATE: 201601
